FAERS Safety Report 22587001 (Version 1)
Quarter: 2023Q2

REPORT INFORMATION
  Report Type: Spontaneous
  Country: PL (occurrence: PL)
  Receive Date: 20230612
  Receipt Date: 20230612
  Transmission Date: 20230722
  Serious: Yes (Death, Other)
  Sender: FDA-Public Use
  Company Number: PL-TEVA-2020-PL-1205443

PATIENT
  Age: 61 Year
  Sex: Male

DRUGS (43)
  1. TRAMADOL HYDROCHLORIDE [Suspect]
     Active Substance: TRAMADOL HYDROCHLORIDE
     Indication: Pain
     Dosage: UNK
     Route: 065
  2. ACETAMINOPHEN\TRAMADOL [Suspect]
     Active Substance: ACETAMINOPHEN\TRAMADOL
     Indication: Analgesic therapy
     Dosage: UNK
     Route: 065
  3. DENOSUMAB [Suspect]
     Active Substance: DENOSUMAB
     Indication: Prostate cancer
     Dosage: 120 MILLIGRAM
     Route: 058
     Dates: start: 201603
  4. BICALUTAMIDE [Suspect]
     Active Substance: BICALUTAMIDE
     Indication: Prostate cancer
     Dosage: 50 MILLIGRAM, 1/DAY
     Route: 065
     Dates: start: 201603
  5. DOCETAXEL [Suspect]
     Active Substance: DOCETAXEL
     Indication: Chemotherapy
     Dosage: 50 MILLIGRAM/SQ. METER
     Route: 065
  6. KETOPROFEN [Suspect]
     Active Substance: KETOPROFEN
     Indication: Pain
     Dosage: UNK
     Route: 065
  7. KETOPROFEN [Suspect]
     Active Substance: KETOPROFEN
     Dosage: 200 MILLIGRAM, 1/DAY
     Route: 065
     Dates: start: 201605
  8. KETOPROFEN [Suspect]
     Active Substance: KETOPROFEN
     Dosage: 200 MILLIGRAM, 1/DAY
     Route: 065
  9. KETOPROFEN [Suspect]
     Active Substance: KETOPROFEN
     Dosage: 100 MILLIGRAM, 2/DAY
     Route: 065
     Dates: start: 201603
  10. GABAPENTIN [Suspect]
     Active Substance: GABAPENTIN
     Indication: Pain
     Dosage: 150 MILLIGRAM, 1/DAY
     Route: 065
  11. GABAPENTIN [Suspect]
     Active Substance: GABAPENTIN
     Dosage: 900 MILLIGRAM
     Route: 065
  12. GABAPENTIN [Suspect]
     Active Substance: GABAPENTIN
     Dosage: UNK
     Route: 065
  13. GABAPENTIN [Suspect]
     Active Substance: GABAPENTIN
     Dosage: 0.3 GRAM, 3/DAY
     Route: 065
     Dates: start: 201603, end: 2016
  14. GABAPENTIN [Suspect]
     Active Substance: GABAPENTIN
     Dosage: 300 MILLIGRAM
     Route: 065
  15. FENTANYL [Suspect]
     Active Substance: FENTANYL
     Indication: Product used for unknown indication
     Dosage: 400 MICROGRAM
     Route: 002
  16. FENTANYL [Suspect]
     Active Substance: FENTANYL
     Dosage: 200 MICROGRAM
     Route: 048
  17. FENTANYL [Suspect]
     Active Substance: FENTANYL
     Dosage: 400 MICROGRAM
     Route: 002
  18. FENTANYL [Suspect]
     Active Substance: FENTANYL
     Dosage: 50 MICROGRAM, 1/DAY
     Route: 065
     Dates: start: 201603, end: 2016
  19. FENTANYL [Suspect]
     Active Substance: FENTANYL
     Dosage: 200 MICROGRAM, 1/HR
     Route: 062
  20. FENTANYL [Suspect]
     Active Substance: FENTANYL
     Dosage: 50 MICROGRAM, 1/HR
     Route: 062
  21. FENTANYL [Suspect]
     Active Substance: FENTANYL
     Dosage: 200 MICROGRAM, 1/HR
     Route: 002
  22. FENTANYL [Suspect]
     Active Substance: FENTANYL
     Dosage: 50 MICROGRAM, 1 /72 HRS
     Route: 062
     Dates: start: 2016, end: 2016
  23. LEUPROLIDE ACETATE [Suspect]
     Active Substance: LEUPROLIDE ACETATE
     Indication: Hormone therapy
     Dosage: UNK
     Route: 065
  24. MORPHINE SULFATE [Suspect]
     Active Substance: MORPHINE SULFATE
     Indication: Pain
     Dosage: 0.02 GRAM
     Route: 065
     Dates: start: 201603
  25. DICLOFENAC [Suspect]
     Active Substance: DICLOFENAC
     Indication: Pain
     Route: 065
  26. TAPENTADOL [Concomitant]
     Active Substance: TAPENTADOL
     Indication: Product used for unknown indication
     Dosage: 75 MILLIGRAM
     Route: 065
  27. TAPENTADOL [Concomitant]
     Active Substance: TAPENTADOL
     Dosage: 150 MILLIGRAM, 1/DAY
     Route: 065
  28. TAPENTADOL [Concomitant]
     Active Substance: TAPENTADOL
     Dosage: 100 MILLIGRAM, 1/DAY
     Route: 065
  29. TAPENTADOL [Concomitant]
     Active Substance: TAPENTADOL
     Dosage: 0.1 MILLIGRAM, 1/DAY
     Route: 065
  30. METAMIZOLE [Concomitant]
     Active Substance: METAMIZOLE
     Indication: Product used for unknown indication
     Dosage: UNK
     Route: 065
  31. DEXKETOPROFEN [Concomitant]
     Active Substance: DEXKETOPROFEN
     Indication: Product used for unknown indication
     Dosage: 1 DOSAGE FORM, 3/DAY
     Route: 065
  32. MORPHINE [Concomitant]
     Active Substance: MORPHINE
     Indication: Cancer pain
     Dosage: 20 MILLIGRAM
     Route: 065
  33. MORPHINE [Concomitant]
     Active Substance: MORPHINE
     Indication: Pain
     Dosage: 0.08 GRAM, 1/DAY
     Route: 048
     Dates: start: 201603
  34. MORPHINE [Concomitant]
     Active Substance: MORPHINE
     Dosage: 0.02 GRAM, 1/DAY
     Route: 048
     Dates: start: 201603
  35. PREGABALIN [Concomitant]
     Active Substance: PREGABALIN
     Indication: Product used for unknown indication
     Dosage: 0.15 GRAM, 1/DAY
     Route: 065
  36. PREGABALIN [Concomitant]
     Active Substance: PREGABALIN
     Dosage: 0.15 GRAM, 2/DAY
     Route: 065
  37. VITAMIN D3 [Concomitant]
     Active Substance: CHOLECALCIFEROL
     Indication: Product used for unknown indication
     Dosage: 4000 INTERNATIONAL UNIT, 1/DAY
     Route: 065
     Dates: start: 201603
  38. VITAMIN D3 [Concomitant]
     Active Substance: CHOLECALCIFEROL
     Dosage: UNK
     Route: 065
  39. VITAMIN D3 [Concomitant]
     Active Substance: CHOLECALCIFEROL
     Dosage: UNK
     Route: 065
  40. NIMESULIDE [Concomitant]
     Active Substance: NIMESULIDE
     Indication: Product used for unknown indication
     Dosage: UNK
     Route: 065
  41. ABIRATERONE [Concomitant]
     Active Substance: ABIRATERONE
     Indication: Product used for unknown indication
     Dosage: UNK
     Route: 065
  42. CHOLECALCIFEROL [Concomitant]
     Active Substance: CHOLECALCIFEROL
     Indication: Product used for unknown indication
     Dosage: 4000 INTERNATIONAL UNIT, 1/DAY
     Route: 065
     Dates: start: 201603
  43. IRON [Concomitant]
     Active Substance: IRON
     Indication: Product used for unknown indication
     Dosage: UNK
     Route: 065

REACTIONS (17)
  - Hyperaesthesia [Recovered/Resolved]
  - Confusional state [Fatal]
  - Product use in unapproved indication [Unknown]
  - Anaemia [Unknown]
  - Dermatitis allergic [Fatal]
  - Drug dependence [Recovered/Resolved]
  - Drug ineffective [Fatal]
  - Constipation [Fatal]
  - Metastases to lung [Unknown]
  - Allodynia [Fatal]
  - Decreased appetite [Fatal]
  - Polyneuropathy in malignant disease [Unknown]
  - Polyneuropathy [Fatal]
  - Toxicity to various agents [Recovered/Resolved]
  - Quality of life decreased [Fatal]
  - Chronic kidney disease [Fatal]
  - Metastases to bone [Unknown]

NARRATIVE: CASE EVENT DATE: 20160101
